FAERS Safety Report 9971012 (Version 1)
Quarter: 2014Q1

REPORT INFORMATION
  Report Type: Report from Study
  Country: US (occurrence: US)
  Receive Date: 20140306
  Receipt Date: 20140306
  Transmission Date: 20141002
  Serious: No
  Sender: FDA-Public Use
  Company Number: US-ABBVIE-13P-163-1153135-00

PATIENT
  Sex: Female

DRUGS (14)
  1. HUMIRA [Suspect]
     Indication: CROHN^S DISEASE
     Dates: start: 201304
  2. AMBIEN [Concomitant]
     Indication: INSOMNIA
  3. VITAMIN B 12 [Concomitant]
     Indication: VITAMIN SUPPLEMENTATION
  4. DEXILANT [Concomitant]
     Indication: GASTROOESOPHAGEAL REFLUX DISEASE
  5. ENTOCORT EC [Concomitant]
     Indication: CROHN^S DISEASE
  6. HYDROCHLOROTHIAZIDE [Concomitant]
     Indication: FLUID RETENTION
  7. LIPITOR [Concomitant]
     Indication: HYPERCHOLESTEROLAEMIA
  8. MULTIVITAMIN [Concomitant]
     Indication: VITAMIN SUPPLEMENTATION
  9. PENTASA [Concomitant]
     Indication: CROHN^S DISEASE
  10. SEROQUEL [Concomitant]
     Indication: DEPRESSION
  11. SYNTHROID [Concomitant]
     Indication: HYPOTHYROIDISM
  12. VIIBRYD [Concomitant]
     Indication: DEPRESSION
  13. VITAMIN D [Concomitant]
     Indication: VITAMIN SUPPLEMENTATION
  14. ZOFRAN [Concomitant]
     Indication: NAUSEA

REACTIONS (2)
  - Crohn^s disease [Not Recovered/Not Resolved]
  - Drug ineffective [Not Recovered/Not Resolved]
